FAERS Safety Report 13002618 (Version 1)
Quarter: 2016Q4

REPORT INFORMATION
  Report Type: Spontaneous
  Country: US (occurrence: US)
  Receive Date: 20161206
  Receipt Date: 20161206
  Transmission Date: 20170207
  Serious: Yes (Disabling)
  Sender: FDA-Public Use
  Company Number: US-BLISTEX INC.-1060473

PATIENT
  Age: 46 Year
  Sex: Male

DRUGS (1)
  1. BLISTEX ODOR-EATERS POWDER [Suspect]
     Active Substance: TOLNAFTATE
     Route: 003
     Dates: start: 20160619, end: 20160619

REACTIONS (1)
  - Adverse drug reaction [Recovered/Resolved]

NARRATIVE: CASE EVENT DATE: 20160820
